FAERS Safety Report 4886815-4 (Version None)
Quarter: 2006Q1

REPORT INFORMATION
  Report Type: 
  Country: None (occurrence: None)
  Receive Date: 20060119
  Receipt Date: 20060119
  Transmission Date: 20060701
  Serious: Yes (Hospitalization)
  Sender: FDA-Public Use
  Company Number: None

PATIENT
  Age: 72 Year
  Sex: Male
  Weight: 79 kg

DRUGS (2)
  1. LOVENOX [Suspect]
     Indication: THROMBOSIS PROPHYLAXIS
     Dosage: 40MG  DAILY  SQ
     Route: 058
     Dates: start: 20051212, end: 20051215
  2. LOVENOX [Suspect]
     Indication: THROMBOSIS PROPHYLAXIS
     Dosage: 40MG  DAILY  SQ
     Route: 058
     Dates: start: 20051220, end: 20060110

REACTIONS (5)
  - AURICULAR SWELLING [None]
  - DEEP VEIN THROMBOSIS [None]
  - EYE SWELLING [None]
  - RASH ERYTHEMATOUS [None]
  - WOUND DEHISCENCE [None]
